FAERS Safety Report 9831442 (Version 3)
Quarter: 2014Q1

REPORT INFORMATION
  Report Type: Spontaneous
  Country: DE (occurrence: DE)
  Receive Date: 20140121
  Receipt Date: 20140308
  Transmission Date: 20141002
  Serious: Yes (Hospitalization)
  Sender: FDA-Public Use
  Company Number: DE-ROCHE-1336139

PATIENT
  Sex: Female

DRUGS (16)
  1. LUCENTIS [Suspect]
     Indication: AGE-RELATED MACULAR DEGENERATION
     Route: 050
     Dates: start: 20131128
  2. BRAUNOL [Suspect]
     Indication: PRODUCT USED FOR UNKNOWN INDICATION
     Route: 065
  3. FLOXAL [Suspect]
     Indication: PRODUCT USED FOR UNKNOWN INDICATION
     Route: 065
  4. CONJUNCAIN [Suspect]
     Indication: PRODUCT USED FOR UNKNOWN INDICATION
     Route: 065
  5. PHETROPIN [Suspect]
     Indication: PRODUCT USED FOR UNKNOWN INDICATION
     Route: 065
  6. VIGANTOLETTEN [Concomitant]
  7. ENALAPRIL [Concomitant]
  8. HYDROCHLOROTHIAZIDE [Concomitant]
  9. TOREM [Concomitant]
  10. ASS [Concomitant]
  11. PANTOZOL (GERMANY) [Concomitant]
  12. ALLOPURINOL [Concomitant]
  13. SIMVASTATIN [Concomitant]
  14. LYRICA [Concomitant]
  15. VITAMIN B COMPLEX [Concomitant]
  16. NICOTINE PATCH [Concomitant]

REACTIONS (1)
  - Hypersensitivity [Recovered/Resolved]
